FAERS Safety Report 7177520-2 (Version None)
Quarter: 2010Q4

REPORT INFORMATION
  Report Type: 
  Country: None (occurrence: None)
  Receive Date: 20101220
  Receipt Date: 20101203
  Transmission Date: 20110411
  Serious: Yes (Other)
  Sender: FDA-Public Use
  Company Number: PHFR2010IE00719

PATIENT
  Sex: Female

DRUGS (5)
  1. CLOZARIL [Suspect]
     Indication: SCHIZOPHRENIA
     Dosage: 200 MG NOCTE + 125 MG MANE
     Route: 048
     Dates: start: 19971029
  2. LAMOTRIGINE [Concomitant]
     Indication: SCHIZOPHRENIA
     Dosage: 100 MG, QD
  3. HALOPERIDOL [Concomitant]
     Indication: SCHIZOPHRENIA
     Dosage: 20 MG, QD
     Route: 048
  4. DIAZEPAM [Concomitant]
     Indication: SCHIZOPHRENIA
     Dosage: 10 MG, QD
     Route: 048
  5. PROCYCLIDINE HYDROCHLORIDE 2MG TAB [Concomitant]
     Indication: SCHIZOPHRENIA
     Dosage: 5 MG, QD
     Route: 048

REACTIONS (7)
  - GASTROOESOPHAGEAL REFLUX DISEASE [None]
  - HAEMOGLOBIN INCREASED [None]
  - HYPERTENSION [None]
  - MEAN CELL VOLUME INCREASED [None]
  - PLATELET COUNT DECREASED [None]
  - RESPIRATORY DISORDER [None]
  - URINARY TRACT INFECTION [None]
